FAERS Safety Report 9838357 (Version 2)
Quarter: 2014Q3

REPORT INFORMATION
  Report Type: Spontaneous
  Country: US (occurrence: US)
  Receive Date: 20140123
  Receipt Date: 20140722
  Transmission Date: 20150326
  Serious: Yes (Hospitalization, Other)
  Sender: FDA-Public Use
  Company Number: US-009507513-1401USA009955

PATIENT
  Sex: Female

DRUGS (2)
  1. NUVARING [Suspect]
     Active Substance: ETHINYL ESTRADIOL\ETONOGESTREL
     Indication: MENORRHAGIA
  2. NUVARING [Suspect]
     Active Substance: ETHINYL ESTRADIOL\ETONOGESTREL
     Indication: CONTRACEPTION
     Dosage: UNK
     Route: 067
     Dates: start: 2013, end: 20130730

REACTIONS (13)
  - Pulmonary infarction [Unknown]
  - Hypochromic anaemia [Unknown]
  - Type 2 diabetes mellitus [Unknown]
  - Pain [Unknown]
  - Microcytic anaemia [Unknown]
  - Off label use [Unknown]
  - Pneumonia [Unknown]
  - Fatigue [Unknown]
  - Pulmonary embolism [Unknown]
  - Hypercoagulation [Unknown]
  - Anaemia vitamin B12 deficiency [Unknown]
  - Iron deficiency anaemia [Unknown]
  - Hypothyroidism [Unknown]

NARRATIVE: CASE EVENT DATE: 2013
